FAERS Safety Report 6810624-X (Version None)
Quarter: 2010Q2

REPORT INFORMATION
  Report Type: 
  Country: None (occurrence: None)
  Receive Date: 20100630
  Receipt Date: 20100618
  Transmission Date: 20101027
  Serious: Yes (Other)
  Sender: FDA-Public Use
  Company Number: PHHY2010US30671

PATIENT
  Sex: Male

DRUGS (3)
  1. EXTAVIA [Suspect]
     Indication: MULTIPLE SCLEROSIS
     Dosage: UNK,UNK
     Route: 058
  2. EXTAVIA [Suspect]
     Dosage: 0.1250 MG (0.50 CC), QOD
     Route: 058
     Dates: start: 20100419
  3. EXTAVIA [Suspect]
     Dosage: UNK,UNK

REACTIONS (10)
  - CHILLS [None]
  - COGNITIVE DISORDER [None]
  - DRUG INTOLERANCE [None]
  - HALLUCINATION [None]
  - HEADACHE [None]
  - INFLUENZA LIKE ILLNESS [None]
  - MALAISE [None]
  - OCULAR DISCOMFORT [None]
  - OPTIC NEURITIS [None]
  - PYREXIA [None]
